FAERS Safety Report 5678504-3 (Version None)
Quarter: 2008Q1

REPORT INFORMATION
  Report Type: 
  Country: None (occurrence: None)
  Receive Date: 20080325
  Receipt Date: 20080319
  Transmission Date: 20080703
  Serious: Yes (Hospitalization)
  Sender: FDA-Public Use
  Company Number: US-ASTRAZENECA-2008UW04411

PATIENT
  Sex: Female

DRUGS (2)
  1. SYMBICORT [Suspect]
     Indication: BRONCHOSPASM
     Dosage: 80/4.5
     Route: 055
     Dates: start: 20080201
  2. LEVAQUIN [Suspect]

REACTIONS (1)
  - NEPHROTIC SYNDROME [None]
